FAERS Safety Report 17159274 (Version 4)
Quarter: 2021Q3

REPORT INFORMATION
  Report Type: Spontaneous
  Country: US (occurrence: US)
  Receive Date: 20191216
  Receipt Date: 20210727
  Transmission Date: 20211014
  Serious: Yes (Other)
  Sender: FDA-Public Use
  Company Number: US-GILEAD-2019-0442852

PATIENT
  Age: 58 Year
  Sex: Male
  Weight: 97.28 kg

DRUGS (42)
  1. NEURONTIN [Concomitant]
     Active Substance: GABAPENTIN
  2. LOPERAMIDE [Concomitant]
     Active Substance: LOPERAMIDE
  3. ZOFRAN [Concomitant]
     Active Substance: ONDANSETRON HYDROCHLORIDE
  4. AMBIEN [Concomitant]
     Active Substance: ZOLPIDEM TARTRATE
  5. EGRIFTA [Concomitant]
     Active Substance: TESAMORELIN ACETATE
  6. TOPIRAMATE ACCORD [Concomitant]
     Active Substance: TOPIRAMATE
  7. PREZISTA [Concomitant]
     Active Substance: DARUNAVIR ETHANOLATE
  8. IBUPROFEN. [Concomitant]
     Active Substance: IBUPROFEN
  9. LASIX + K [Concomitant]
     Active Substance: FUROSEMIDE\POTASSIUM CHLORIDE
  10. CEREFOLIN NAC [ACETYLCYSTEINE;CALCIUM LEVOMEFOLATE;MECOBALAMIN] [Concomitant]
     Active Substance: ACETYLCYSTEINE\LEVOMEFOLATE CALCIUM\METHYLCOBALAMIN
  11. OXYCODONE WITH APAP [Concomitant]
     Active Substance: ACETAMINOPHEN\OXYCODONE HYDROCHLORIDE
  12. NORVIR [Concomitant]
     Active Substance: RITONAVIR
  13. SPIRONOLACTONE AND HYDROCHLOROTHIAZIDE [Concomitant]
     Active Substance: HYDROCHLOROTHIAZIDE\SPIRONOLACTONE
  14. NEXIUM 1?2?3 [Concomitant]
     Active Substance: AMOXICILLIN\CLARITHROMYCIN\ESOMEPRAZOLE
  15. VENTOLIN [Concomitant]
     Active Substance: ALBUTEROL SULFATE
  16. IMITREX DF [Concomitant]
     Active Substance: SUMATRIPTAN SUCCINATE
  17. CHANTIX [Concomitant]
     Active Substance: VARENICLINE TARTRATE
  18. SINGULAIR [Concomitant]
     Active Substance: MONTELUKAST SODIUM
  19. PROMETHAZINE [Concomitant]
     Active Substance: PROMETHAZINE HYDROCHLORIDE
  20. XANAX [Concomitant]
     Active Substance: ALPRAZOLAM
  21. PERCOCET [OXYCODONE HYDROCHLORIDE;OXYCODONE TEREPHTHALATE;PARACETAMOL] [Concomitant]
     Active Substance: ACETAMINOPHEN\OXYCODONE HYDROCHLORIDE\OXYCODONE TEREPHTHALATE
  22. TOPAMAX [Concomitant]
     Active Substance: TOPIRAMATE
  23. ARTHROTEC [Suspect]
     Active Substance: DICLOFENAC SODIUM\MISOPROSTOL
     Indication: ARTHRITIS
     Dosage: UNK, BID
     Route: 048
  24. DYAZIDE [Concomitant]
     Active Substance: HYDROCHLOROTHIAZIDE\TRIAMTERENE
  25. DONEPEZIL HCL [Concomitant]
     Active Substance: DONEPEZIL HYDROCHLORIDE
  26. ALPRAZOLAM. [Concomitant]
     Active Substance: ALPRAZOLAM
  27. NAMENDA [Concomitant]
     Active Substance: MEMANTINE HYDROCHLORIDE
  28. ADVAIR HFA [Concomitant]
     Active Substance: FLUTICASONE PROPIONATE\SALMETEROL XINAFOATE
  29. INTELENCE [Concomitant]
     Active Substance: ETRAVIRINE
  30. LOSARTAN POTASSIUM. [Concomitant]
     Active Substance: LOSARTAN POTASSIUM
  31. VIAGRA [Concomitant]
     Active Substance: SILDENAFIL CITRATE
  32. MEMANTINE HCL [Concomitant]
     Active Substance: MEMANTINE
  33. MONTELUKAST SODIUM NIPPON ZOKI [Concomitant]
  34. TRUVADA [Suspect]
     Active Substance: EMTRICITABINE\TENOFOVIR DISOPROXIL FUMARATE
     Indication: HIV INFECTION
     Dosage: 200/300 MG, QD
     Route: 048
     Dates: start: 20130509, end: 20130814
  35. ISENTRESS [Concomitant]
     Active Substance: RALTEGRAVIR POTASSIUM
  36. MULTIVITAMIN + MINERAL [Concomitant]
     Active Substance: MINERALS\VITAMINS
  37. VITAMIN B12 + FOLIC ACID [Concomitant]
     Active Substance: CYANOCOBALAMIN\FOLIC ACID
  38. KLOR?CON [Concomitant]
     Active Substance: POTASSIUM CHLORIDE
  39. ZIDOVUDINE. [Concomitant]
     Active Substance: ZIDOVUDINE
  40. OXYCONTIN [Concomitant]
     Active Substance: OXYCODONE HYDROCHLORIDE
  41. FOLTANX RF [Concomitant]
  42. PHENTERMINE. [Concomitant]
     Active Substance: PHENTERMINE

REACTIONS (9)
  - Chronic kidney disease [Not Recovered/Not Resolved]
  - Renal failure [Unknown]
  - Anxiety [Unknown]
  - Acute kidney injury [Unknown]
  - Emotional distress [Unknown]
  - Anhedonia [Unknown]
  - Pain [Unknown]
  - Osteonecrosis [Recovered/Resolved]
  - Economic problem [Unknown]

NARRATIVE: CASE EVENT DATE: 20130509
